FAERS Safety Report 25054435 (Version 2)
Quarter: 2025Q1

REPORT INFORMATION
  Report Type: Spontaneous
  Country: US (occurrence: US)
  Receive Date: 20250307
  Receipt Date: 20250327
  Transmission Date: 20250409
  Serious: No
  Sender: SANOFI AVENTIS
  Company Number: US-SA-2025SA065813

PATIENT
  Age: 34 Year
  Sex: Female

DRUGS (7)
  1. DUPIXENT [Suspect]
     Active Substance: DUPILUMAB
     Indication: Asthma
     Route: 058
     Dates: start: 20250128, end: 20250128
  2. DUPIXENT [Suspect]
     Active Substance: DUPILUMAB
     Dosage: 300 MG, QOW
     Route: 058
     Dates: start: 202502
  3. ALBUTEROL SULFATE [Concomitant]
     Active Substance: ALBUTEROL SULFATE
  4. IPRATROPIUM BROMIDE [Concomitant]
     Active Substance: IPRATROPIUM BROMIDE
  5. PANTOPRAZOLE SODIUM [Concomitant]
     Active Substance: PANTOPRAZOLE SODIUM
     Route: 048
  6. TRAMADOL HCL [Concomitant]
     Active Substance: TRAMADOL HYDROCHLORIDE
     Route: 048
  7. TRETINOIN [Concomitant]
     Active Substance: TRETINOIN

REACTIONS (8)
  - Peripheral swelling [Unknown]
  - Psoriasis [Unknown]
  - Sleep apnoea syndrome [Unknown]
  - Alopecia [Unknown]
  - Rash pruritic [Unknown]
  - Condition aggravated [Unknown]
  - Bruxism [Unknown]
  - Trichorrhexis [Unknown]

NARRATIVE: CASE EVENT DATE: 20250203
